FAERS Safety Report 5029520-6 (Version None)
Quarter: 2006Q2

REPORT INFORMATION
  Report Type: 
  Country: None (occurrence: None)
  Receive Date: 20060620
  Receipt Date: 20051109
  Transmission Date: 20061013
  Serious: No
  Sender: FDA-Public Use
  Company Number: US-GLAXOSMITHKLINE-A0581578A

PATIENT
  Age: 39 Year
  Sex: Female

DRUGS (1)
  1. ZYBAN [Suspect]
     Dosage: 300MG TWICE PER DAY
     Route: 048
     Dates: start: 19980101, end: 19980101

REACTIONS (1)
  - SLEEP DISORDER [None]
